FAERS Safety Report 13639335 (Version 2)
Quarter: 2018Q2

REPORT INFORMATION
  Report Type: Spontaneous
  Country: US (occurrence: US)
  Receive Date: 20170609
  Receipt Date: 20180625
  Transmission Date: 20180711
  Serious: Yes (Other)
  Sender: FDA-Public Use
  Company Number: US-ROCHE-1398438

PATIENT
  Sex: Female

DRUGS (18)
  1. ASPIRIN. [Concomitant]
     Active Substance: ASPIRIN
     Route: 065
  2. COLACE [Concomitant]
     Active Substance: DOCUSATE SODIUM
  3. VITAMIN B2 [Concomitant]
     Active Substance: RIBOFLAVIN
     Dosage: DAILY
     Route: 065
  4. SENOKOT [Concomitant]
     Active Substance: SENNOSIDES
  5. ISOTRETINOIN. [Concomitant]
     Active Substance: ISOTRETINOIN
     Route: 065
  6. ISORDIL [Concomitant]
     Active Substance: ISOSORBIDE DINITRATE
     Route: 065
  7. COENZYME Q10 [Concomitant]
     Active Substance: UBIDECARENONE
  8. ACIDOPHILUS [Concomitant]
     Active Substance: LACTOBACILLUS ACIDOPHILUS
  9. COLACE [Concomitant]
     Active Substance: DOCUSATE SODIUM
  10. ZONISAMIDE. [Concomitant]
     Active Substance: ZONISAMIDE
     Indication: SEIZURE
     Dosage: ONGOING
     Route: 065
  11. KLONOPIN [Suspect]
     Active Substance: CLONAZEPAM
     Indication: SEIZURE
     Route: 065
  12. ZONEGRAN [Concomitant]
     Active Substance: ZONISAMIDE
     Route: 065
  13. VITAMIN B12 [Concomitant]
     Active Substance: CYANOCOBALAMIN
     Route: 065
  14. VITAMIN B12 [Concomitant]
     Active Substance: CYANOCOBALAMIN
     Dosage: TWICE DAILY
     Route: 065
  15. ASPIRIN ^BAYER^ [Concomitant]
     Active Substance: ASPIRIN
  16. DILANTIN [Suspect]
     Active Substance: PHENYTOIN
     Indication: PRODUCT USED FOR UNKNOWN INDICATION
     Route: 065
  17. NITROSTAT [Concomitant]
     Active Substance: NITROGLYCERIN
     Indication: STRESS
     Dosage: ONGOING: UNKNOWN
     Route: 065
  18. VITAMIN B2 [Concomitant]
     Active Substance: RIBOFLAVIN
     Dosage: DAILY
     Route: 065

REACTIONS (11)
  - Fatigue [Unknown]
  - Fall [Unknown]
  - Balance disorder [Unknown]
  - Drug hypersensitivity [Unknown]
  - Drug ineffective [Unknown]
  - Emotional distress [Unknown]
  - Pain [Unknown]
  - Seizure [Not Recovered/Not Resolved]
  - Anxiety [Unknown]
  - Asthenia [Unknown]
  - Insomnia [Unknown]
